FAERS Safety Report 10150728 (Version 1)
Quarter: 2014Q2

REPORT INFORMATION
  Report Type: Spontaneous
  Country: US (occurrence: US)
  Receive Date: 20140502
  Receipt Date: 20140502
  Transmission Date: 20141212
  Serious: No
  Sender: FDA-Public Use
  Company Number: US-BAXTER-2014BAX019907

PATIENT
  Sex: 0

DRUGS (2)
  1. LACTATED RINGER^S AND 5% DEXTROSE INJECTION, USP [Suspect]
     Indication: PRODUCT CONTAINER ISSUE
     Route: 061
  2. LACTATED RINGER^S AND 5% DEXTROSE INJECTION, USP [Suspect]
     Indication: OCCUPATIONAL EXPOSURE TO PRODUCT

REACTIONS (3)
  - Product container issue [Unknown]
  - Occupational exposure to product [Unknown]
  - No adverse event [Recovered/Resolved]
